FAERS Safety Report 5621286-1 (Version None)
Quarter: 2008Q1

REPORT INFORMATION
  Report Type: 
  Country: None (occurrence: None)
  Receive Date: 20080211
  Receipt Date: 20080131
  Transmission Date: 20080703
  Serious: Yes (Other)
  Sender: FDA-Public Use
  Company Number: US-JNJFOC-20080200486

PATIENT
  Sex: Female
  Weight: 129.28 kg

DRUGS (2)
  1. ORTHO TRI-CYCLEN [Suspect]
     Indication: MENSTRUATION IRREGULAR
  2. GLUCOSIDE [Concomitant]
     Indication: TYPE 2 DIABETES MELLITUS

REACTIONS (4)
  - DIABETES MELLITUS [None]
  - MENORRHAGIA [None]
  - MENSTRUATION DELAYED [None]
  - PREMENSTRUAL SYNDROME [None]
